FAERS Safety Report 4865208-X (Version None)
Quarter: 2005Q4

REPORT INFORMATION
  Report Type: 
  Country: None (occurrence: None)
  Receive Date: 20051223
  Receipt Date: 20051206
  Transmission Date: 20060501
  Serious: Yes (Disabling)
  Sender: FDA-Public Use
  Company Number: JP-JPN-A20052997

PATIENT
  Age: 63 Year
  Sex: Female
  Weight: 48 kg

DRUGS (1)
  1. PAXIL [Suspect]
     Indication: DEPRESSION
     Route: 048
     Dates: start: 20050413, end: 20050606

REACTIONS (1)
  - DYSGEUSIA [None]
